FAERS Safety Report 10580008 (Version 1)
Quarter: 2014Q4

REPORT INFORMATION
  Report Type: Spontaneous
  Country: FR (occurrence: FR)
  Receive Date: 20141112
  Receipt Date: 20141112
  Transmission Date: 20150529
  Serious: Yes (Hospitalization)
  Sender: FDA-Public Use
  Company Number: FR-009507513-1411FRA004531

PATIENT
  Age: 20 Year
  Sex: Male

DRUGS (4)
  1. HELICIDINE [Suspect]
     Active Substance: ESCARGOT
     Dosage: UNK
     Route: 048
     Dates: start: 20141004, end: 20141010
  2. LAMICTAL [Suspect]
     Active Substance: LAMOTRIGINE
     Indication: BIPOLAR DISORDER
     Dosage: 50 MG, BID
     Route: 048
     Dates: start: 201407, end: 20141020
  3. NASONEX [Suspect]
     Active Substance: MOMETASONE FUROATE
     Dosage: UNK
     Route: 045
     Dates: start: 20141004, end: 20141010
  4. AMOXICILLIN. [Suspect]
     Active Substance: AMOXICILLIN
     Dosage: 1 G, BID
     Route: 048
     Dates: start: 20141004, end: 20141010

REACTIONS (2)
  - Erythema multiforme [Recovering/Resolving]
  - Vascular purpura [Recovering/Resolving]

NARRATIVE: CASE EVENT DATE: 20141019
